FAERS Safety Report 5255183-0 (Version None)
Quarter: 2007Q1

REPORT INFORMATION
  Report Type: 
  Country: None (occurrence: None)
  Receive Date: 20070305
  Receipt Date: 20070228
  Transmission Date: 20070707
  Serious: Yes (Death)
  Sender: FDA-Public Use
  Company Number: 2006UW01799

PATIENT
  Sex: Male
  Weight: 100 kg

DRUGS (1)
  1. SEROQUEL [Suspect]
     Route: 048
     Dates: start: 19970101, end: 20050501

REACTIONS (3)
  - CARDIAC DISORDER [None]
  - DEATH [None]
  - DIABETES MELLITUS [None]
